FAERS Safety Report 11269746 (Version 1)
Quarter: 2015Q3

REPORT INFORMATION
  Report Type: Spontaneous
  Country: US (occurrence: None)
  Receive Date: 20150713
  Receipt Date: 20150713
  Transmission Date: 20151125
  Serious: Yes (Other)
  Sender: FDA-Public Use
  Company Number: None

PATIENT
  Age: 34 Year
  Sex: Female

DRUGS (1)
  1. COPAXONE [Suspect]
     Active Substance: GLATIRAMER ACETATE
     Dosage: N/A  3X WEEKLY  INJECTION
     Dates: start: 201503, end: 201505

REACTIONS (2)
  - Skin exfoliation [None]
  - Urticaria [None]

NARRATIVE: CASE EVENT DATE: 20150710
